FAERS Safety Report 4867109-X (Version None)
Quarter: 2005Q4

REPORT INFORMATION
  Report Type: 
  Country: None (occurrence: None)
  Receive Date: 20051222
  Receipt Date: 20051206
  Transmission Date: 20060501
  Serious: Yes (Hospitalization)
  Sender: FDA-Public Use
  Company Number: US200512001363

PATIENT
  Age: 95 Year
  Sex: Female

DRUGS (2)
  1. FORTEO [Suspect]
     Dates: start: 20041201, end: 20051129
  2. FORTEO PEN (250MCG/ML) (FORTEO PEN 250MCG/ML (3ML)) PEN, DISPOSABLE [Concomitant]

REACTIONS (3)
  - MEDICAL DEVICE COMPLICATION [None]
  - MYOCARDIAL INFARCTION [None]
  - PHARMACEUTICAL PRODUCT COMPLAINT [None]
